FAERS Safety Report 9143700 (Version 1)
Quarter: 2013Q1

REPORT INFORMATION
  Report Type: Spontaneous
  Country: FR (occurrence: FR)
  Receive Date: 20130306
  Receipt Date: 20130306
  Transmission Date: 20140127
  Serious: Yes (Other)
  Sender: FDA-Public Use
  Company Number: FR-BRISTOL-MYERS SQUIBB COMPANY-17417668

PATIENT
  Age: 81 Year
  Sex: Female

DRUGS (6)
  1. COUMADINE [Suspect]
     Indication: PULMONARY EMBOLISM
     Dosage: 1DF: ALTERNATING DOSE 2MG, 1.75 MG AND 1.5 MG?MISTAKENLY TAKEN 5MG
     Route: 048
     Dates: start: 20120627, end: 20121011
  2. LEVOTHYROX [Concomitant]
     Dosage: 14AUG12: REDUCED TO HALF
  3. ZANIDIP [Concomitant]
  4. LODOZ [Concomitant]
  5. ACTONEL [Concomitant]
     Dosage: 1DF: 35 UNITS NOS
  6. XANAX [Concomitant]
     Dosage: 1DF: 0.5 UNITS NOS

REACTIONS (3)
  - International normalised ratio increased [Recovered/Resolved]
  - Drug dispensing error [Unknown]
  - Overdose [Unknown]
